FAERS Safety Report 10061217 (Version 1)
Quarter: 2014Q2

REPORT INFORMATION
  Report Type: Spontaneous
  Country: GB (occurrence: GB)
  Receive Date: 20140407
  Receipt Date: 20140407
  Transmission Date: 20141212
  Serious: Yes (Other)
  Sender: FDA-Public Use
  Company Number: PHHY2014GB036844

PATIENT
  Sex: 0

DRUGS (4)
  1. AMLODIPINE [Suspect]
     Indication: HYPERTENSION
     Dosage: 2.5 MG, UNK
  2. AMLODIPINE [Suspect]
     Dosage: 10 MG, UNK
     Route: 048
  3. AMLODIPINE [Suspect]
     Dosage: 5 MG, QD
     Route: 048
  4. PREDNISOLONE [Concomitant]
     Indication: PRODUCT USED FOR UNKNOWN INDICATION

REACTIONS (10)
  - Polymyalgia rheumatica [Unknown]
  - Blood pressure fluctuation [Unknown]
  - Wrong technique in drug usage process [Unknown]
  - Dyspnoea [Unknown]
  - Cough [Unknown]
  - Vasculitis [Unknown]
  - Pain in extremity [Unknown]
  - Joint swelling [Unknown]
  - Pollakiuria [Unknown]
  - Headache [Unknown]
